FAERS Safety Report 20696053 (Version 3)
Quarter: 2023Q4

REPORT INFORMATION
  Report Type: Report from Study
  Country: CA (occurrence: CA)
  Receive Date: 20220411
  Receipt Date: 20231117
  Transmission Date: 20240110
  Serious: Yes (Hospitalization, Other)
  Sender: FDA-Public Use
  Company Number: CA-PFIZER INC-202200505543

PATIENT
  Age: 42 Year
  Sex: Female

DRUGS (8)
  1. AZITHROMYCIN ANHYDROUS [Suspect]
     Active Substance: AZITHROMYCIN ANHYDROUS
     Dosage: UNK
     Route: 065
  2. OMALIZUMAB [Suspect]
     Active Substance: OMALIZUMAB
     Indication: Asthma
     Dosage: 300 MG
     Route: 058
  3. OMALIZUMAB [Suspect]
     Active Substance: OMALIZUMAB
     Dosage: 300 MG
     Route: 058
  4. OMALIZUMAB [Suspect]
     Active Substance: OMALIZUMAB
     Dosage: 300 MG
     Route: 058
  5. OMALIZUMAB [Suspect]
     Active Substance: OMALIZUMAB
     Dosage: UNK
     Route: 058
  6. OMALIZUMAB [Suspect]
     Active Substance: OMALIZUMAB
     Dosage: UNK
     Route: 058
  7. OMALIZUMAB [Suspect]
     Active Substance: OMALIZUMAB
     Dosage: 300 MG
     Route: 058
  8. OMALIZUMAB [Suspect]
     Active Substance: OMALIZUMAB
     Indication: Asthma
     Dosage: 300 MG
     Route: 058

REACTIONS (24)
  - Abdominal pain [Recovering/Resolving]
  - Anxiety [Recovering/Resolving]
  - Drug hypersensitivity [Recovering/Resolving]
  - Erythema [Recovering/Resolving]
  - Headache [Recovering/Resolving]
  - Heart rate increased [Recovering/Resolving]
  - Pruritus [Recovering/Resolving]
  - Urticaria [Recovering/Resolving]
  - Bronchitis [Recovering/Resolving]
  - Concussion [Recovering/Resolving]
  - Bone contusion [Recovering/Resolving]
  - Gastric ulcer [Recovering/Resolving]
  - Hepatic steatosis [Recovering/Resolving]
  - Herpes zoster [Recovering/Resolving]
  - Illness [Recovering/Resolving]
  - Immunodeficiency [Recovering/Resolving]
  - Injury [Recovering/Resolving]
  - Nasopharyngitis [Recovering/Resolving]
  - Oropharyngeal pain [Recovering/Resolving]
  - Post-traumatic neck syndrome [Recovering/Resolving]
  - Road traffic accident [Recovering/Resolving]
  - Sensitivity to weather change [Recovering/Resolving]
  - Swelling [Recovering/Resolving]
  - Weight decreased [Recovering/Resolving]
